FAERS Safety Report 7982015-X (Version None)
Quarter: 2011Q4

REPORT INFORMATION
  Report Type: 
  Country: None (occurrence: None)
  Receive Date: 20111212
  Receipt Date: 20111128
  Transmission Date: 20120403
  Serious: Yes (Hospitalization, Other)
  Sender: FDA-Public Use
  Company Number: 2011MA016918

PATIENT
  Age: 48 Year
  Sex: Male
  Weight: 99.7913 kg

DRUGS (14)
  1. COVERA-HS [Concomitant]
  2. AMOXICILLIN [Concomitant]
  3. NITROGLYCERIN [Concomitant]
  4. ATENOLOL [Concomitant]
  5. CEPHALEXIN [Concomitant]
  6. HYDROCODONE [Concomitant]
  7. DIGOXIN [Suspect]
     Indication: ATRIAL FIBRILLATION
     Dosage: 0.25 MG 1.5 TABS;QD;PO
     Route: 048
     Dates: start: 20030318, end: 20090604
  8. VITAMIN K TAB [Concomitant]
  9. PRAVASTATIN [Concomitant]
  10. VERAPAMIL [Concomitant]
  11. POTASSIUM CHLORIDE [Concomitant]
  12. WARFARIN SODIUM [Concomitant]
  13. FUROSEMIDE [Concomitant]
  14. APAP TAB [Concomitant]

REACTIONS (23)
  - PAIN [None]
  - UNEVALUABLE EVENT [None]
  - SURGERY [None]
  - BLOOD PRESSURE INCREASED [None]
  - SOCIAL AVOIDANT BEHAVIOUR [None]
  - INJURY [None]
  - CHEST PAIN [None]
  - CARDIAC FAILURE CONGESTIVE [None]
  - DYSPNOEA [None]
  - ELECTROCARDIOGRAM ST-T SEGMENT ABNORMAL [None]
  - ECONOMIC PROBLEM [None]
  - OXYGEN SUPPLEMENTATION [None]
  - CARDIAC STRESS TEST ABNORMAL [None]
  - LOSS OF EMPLOYMENT [None]
  - HYPERHIDROSIS [None]
  - PROTHROMBIN TIME PROLONGED [None]
  - CARDIOACTIVE DRUG LEVEL BELOW THERAPEUTIC [None]
  - CARDIOACTIVE DRUG LEVEL ABOVE THERAPEUTIC [None]
  - BLOOD UREA INCREASED [None]
  - EMOTIONAL DISTRESS [None]
  - HEART RATE IRREGULAR [None]
  - ATRIAL FIBRILLATION [None]
  - BRAIN NATRIURETIC PEPTIDE INCREASED [None]
